FAERS Safety Report 6200167-9 (Version None)
Quarter: 2009Q2

REPORT INFORMATION
  Report Type: 
  Country: None (occurrence: None)
  Receive Date: 20090522
  Receipt Date: 20090512
  Transmission Date: 20091009
  Serious: Yes (Other)
  Sender: FDA-Public Use
  Company Number: US-JNJFOC-20090503051

PATIENT
  Age: 44 Year
  Sex: Female

DRUGS (3)
  1. ULTRAM ER [Suspect]
     Indication: BACK PAIN
     Route: 048
     Dates: start: 20090505, end: 20090509
  2. ULTRAM ER [Suspect]
     Indication: MUSCULOSKELETAL PAIN
     Route: 048
     Dates: start: 20090505, end: 20090509
  3. SOMA [Concomitant]
     Indication: MUSCLE RELAXANT THERAPY
     Route: 065

REACTIONS (1)
  - DEAFNESS BILATERAL [None]
